FAERS Safety Report 26087710 (Version 1)
Quarter: 2025Q4

REPORT INFORMATION
  Report Type: Spontaneous
  Country: US (occurrence: None)
  Receive Date: 20251125
  Receipt Date: 20251125
  Transmission Date: 20260118
  Serious: No
  Sender: INCYTE
  Company Number: US-INCYTE CORPORATION-2025IN012767

PATIENT
  Age: 75 Year
  Weight: 82.8 kg

DRUGS (1)
  1. JAKAFI [Suspect]
     Active Substance: RUXOLITINIB
     Indication: Basal cell carcinoma
     Dosage: 20 MILLIGRAM, BID

REACTIONS (2)
  - Off label use [Unknown]
  - Product physical issue [Unknown]
